FAERS Safety Report 8406258-6 (Version None)
Quarter: 2012Q2

REPORT INFORMATION
  Report Type: 
  Country: None (occurrence: None)
  Receive Date: 20120604
  Receipt Date: 20120528
  Transmission Date: 20120825
  Serious: Yes (Other)
  Sender: FDA-Public Use
  Company Number: PHHY2011CA30685

PATIENT
  Sex: Female

DRUGS (11)
  1. EXJADE [Suspect]
     Dosage: UNK
     Dates: end: 20110416
  2. EXJADE [Suspect]
     Dosage: 2000 MG
     Route: 048
  3. EXJADE [Suspect]
     Dosage: 750 MG,
     Route: 048
  4. BLOOD TRANSFUSION, AUXILIARY PRODUCTS [Concomitant]
     Dosage: EVERY 2 WEEKS
  5. HYDROCHLOROTHIAZIDE [Concomitant]
     Dosage: UNK
  6. EXJADE [Suspect]
     Dosage: 2000 MG, DAILY
     Route: 048
     Dates: start: 20110520
  7. LEVOTHYROXINE SODIUM [Concomitant]
     Dosage: UNK
  8. LASIX [Concomitant]
  9. EXJADE [Suspect]
     Indication: MYELODYSPLASTIC SYNDROME
     Dosage: 1000 MG,
     Route: 048
  10. PREMARIN [Concomitant]
     Dosage: UNK
  11. EXJADE [Suspect]
     Dosage: 2000 MG, QD
     Route: 048
     Dates: end: 20110415

REACTIONS (9)
  - HAEMOGLOBIN DECREASED [None]
  - PROTEIN URINE PRESENT [None]
  - FATIGUE [None]
  - FLUID RETENTION [None]
  - MUSCLE SPASMS [None]
  - WEIGHT DECREASED [None]
  - BLOOD IRON INCREASED [None]
  - MACULAR DEGENERATION [None]
  - VISION BLURRED [None]
